FAERS Safety Report 7488202-1 (Version None)
Quarter: 2011Q2

REPORT INFORMATION
  Report Type: 
  Country: None (occurrence: None)
  Receive Date: 20110518
  Receipt Date: 20110510
  Transmission Date: 20111010
  Serious: Yes (Hospitalization)
  Sender: FDA-Public Use
  Company Number: PHHO2011US06031

PATIENT
  Sex: Female

DRUGS (14)
  1. LANTUS [Suspect]
     Dosage: UNK
     Dates: start: 20110202, end: 20110203
  2. LANTUS [Suspect]
     Dosage: UNK
     Dates: start: 20110205, end: 20110214
  3. ACTOS [Suspect]
     Dosage: UNK
     Dates: start: 20101215, end: 20101226
  4. LANTUS [Suspect]
     Dosage: NO TREATMENT
     Dates: start: 20110204, end: 20110204
  5. NOVOLOG [Suspect]
     Dosage: UNK
     Dates: start: 20110205, end: 20110214
  6. LANTUS [Suspect]
     Dosage: NO TREATMENT
     Dates: start: 20110215, end: 20110217
  7. RANEXA [Suspect]
  8. SAXAGLIPTIN [Suspect]
  9. NOVOLOG [Suspect]
     Dosage: NO TREATMENT
     Dates: start: 20110204, end: 20110204
  10. NITRATES [Concomitant]
  11. DICLOFENAC SODIUM [Suspect]
  12. LANTUS [Suspect]
     Dosage: UNK
     Dates: start: 20110218
  13. NOVOLOG [Suspect]
     Dosage: UNK
     Dates: start: 20110202, end: 20110203
  14. ASPIRIN [Concomitant]

REACTIONS (6)
  - CHEST PAIN [None]
  - RENAL FAILURE ACUTE [None]
  - NON-CARDIAC CHEST PAIN [None]
  - ABDOMINAL PAIN [None]
  - HYPERHIDROSIS [None]
  - GASTROOESOPHAGEAL REFLUX DISEASE [None]
